FAERS Safety Report 8778950 (Version 2)
Quarter: 2012Q4

REPORT INFORMATION
  Report Type: 
  Country: GB (occurrence: GB)
  Receive Date: 20120912
  Receipt Date: 20121212
  Transmission Date: 20130627
  Serious: Yes (Death)
  Sender: FDA-Public Use
  Company Number: GB-NAPPMUNDI-GBR-2012-0011363

PATIENT
  Age: 46 Year
  Sex: Male

DRUGS (14)
  1. OXYCODONE HYDROCHLORIDE [Suspect]
     Indication: PRODUCT USED FOR UNKNOWN INDICATION
     Dosage: UNK
     Route: 065
  2. ZOPICLONE [Interacting]
     Indication: PRODUCT USED FOR UNKNOWN INDICATION
     Route: 065
  3. CODEINE [Interacting]
     Indication: PRODUCT USED FOR UNKNOWN INDICATION
     Route: 065
  4. NAPROXEN [Concomitant]
  5. RISPERIDONE [Concomitant]
  6. NOVOMIX [Concomitant]
  7. PREGABALIN [Concomitant]
  8. METRONIDAZOLE [Concomitant]
  9. DULOXETINE [Concomitant]
  10. AUGMENTIN                          /00756801/ [Concomitant]
  11. ROSUVASTATIN [Concomitant]
  12. QUININE [Concomitant]
  13. PARACETAMOL [Concomitant]
  14. MIRTAZAPINE [Concomitant]

REACTIONS (3)
  - Diabetic ketoacidosis [Fatal]
  - Toxicity to various agents [Fatal]
  - Drug interaction [Fatal]
